FAERS Safety Report 5889514-5 (Version None)
Quarter: 2008Q3

REPORT INFORMATION
  Report Type: 
  Country: None (occurrence: None)
  Receive Date: 20080919
  Receipt Date: 20080910
  Transmission Date: 20090109
  Serious: Yes (Other)
  Sender: FDA-Public Use
  Company Number: IE-ASTRAZENECA-2008GB01555

PATIENT
  Age: 16603 Day
  Sex: Female

DRUGS (9)
  1. SEROQUEL XR [Suspect]
     Route: 048
     Dates: start: 20080808, end: 20080812
  2. CAMCOLIT [Concomitant]
  3. CAMCOLIT [Concomitant]
  4. KEMADRIN [Concomitant]
  5. KEMADRIN [Concomitant]
  6. ELTROXIN [Concomitant]
  7. ELTROXIN [Concomitant]
  8. PREMARIN [Concomitant]
  9. PREMARIN [Concomitant]

REACTIONS (6)
  - AGITATION [None]
  - ANXIETY [None]
  - APHASIA [None]
  - COORDINATION ABNORMAL [None]
  - HYPERSENSITIVITY [None]
  - MEMORY IMPAIRMENT [None]
